FAERS Safety Report 4810296-X (Version None)
Quarter: 2005Q4

REPORT INFORMATION
  Report Type: 
  Country: None (occurrence: None)
  Receive Date: 20051026
  Receipt Date: 20051019
  Transmission Date: 20060501
  Serious: Yes (Hospitalization, Other)
  Sender: FDA-Public Use
  Company Number: PHEH2005US11694

PATIENT
  Age: 73 Year
  Sex: Female
  Weight: 62 kg

DRUGS (6)
  1. DIOVAN HCT [Suspect]
     Indication: HYPERTENSION
     Dosage: 160/12.5 MG
     Dates: start: 20020101
  2. DIOVAN HCT [Suspect]
     Dosage: 160/12.5 MG 1/2 TABLET
     Dates: start: 20051014
  3. PREMARIN [Concomitant]
     Indication: HORMONE REPLACEMENT THERAPY
  4. CELEBREX [Concomitant]
     Indication: ARTHRITIS
  5. VITAMIN E [Concomitant]
  6. TOPROL-XL [Concomitant]

REACTIONS (7)
  - ARTHRITIS [None]
  - CORONARY ARTERY OCCLUSION [None]
  - DEPRESSION [None]
  - HIP ARTHROPLASTY [None]
  - HYPOTENSION [None]
  - KNEE ARTHROPLASTY [None]
  - STENT PLACEMENT [None]
